FAERS Safety Report 7145241-8 (Version None)
Quarter: 2010Q4

REPORT INFORMATION
  Report Type: 
  Country: None (occurrence: None)
  Receive Date: 20101208
  Receipt Date: 20101126
  Transmission Date: 20110411
  Serious: Yes (Hospitalization)
  Sender: FDA-Public Use
  Company Number: PHHY2010FR77436

PATIENT
  Sex: Male

DRUGS (7)
  1. TEGRETOL [Suspect]
     Indication: TRIGEMINAL NEURALGIA
     Dosage: 200 MG, QD
     Route: 048
     Dates: start: 20081220, end: 20100509
  2. TEGRETOL [Suspect]
     Dosage: 200 MG, TID
     Route: 048
     Dates: start: 20100510, end: 20100914
  3. TRIMETAZIDINE [Concomitant]
     Dosage: 20 MG, UNK
     Dates: start: 20001102
  4. EXFORGE [Concomitant]
     Dosage: 5/160, UNK
     Dates: start: 20080613
  5. AMIODARONE [Concomitant]
     Dosage: UNK
     Dates: start: 20080711
  6. LEVOTHYROX [Concomitant]
     Dosage: UNK
  7. ZOLPIDEM [Concomitant]
     Dosage: UNK
     Dates: start: 20030623

REACTIONS (5)
  - AGITATION [None]
  - AMNESIA [None]
  - BLOOD POTASSIUM ABNORMAL [None]
  - DISORIENTATION [None]
  - MALAISE [None]
